FAERS Safety Report 6957436-4 (Version None)
Quarter: 2010Q3

REPORT INFORMATION
  Report Type: 
  Country: None (occurrence: None)
  Receive Date: 20100831
  Receipt Date: 20100817
  Transmission Date: 20110219
  Serious: Yes (Other)
  Sender: FDA-Public Use
  Company Number: GB-TYCO HEALTHCARE/MALLINCKRODT-T201001852

PATIENT
  Age: 40 Week

DRUGS (4)
  1. METHADOSE [Suspect]
     Dosage: UNK
  2. HEROIN [Suspect]
     Dosage: UNK
  3. BENZODIAZEPINE DERIVATIVES [Suspect]
     Dosage: UNK
  4. ALCOHOL [Suspect]
     Dosage: UNK

REACTIONS (4)
  - CEREBRAL PALSY [None]
  - DRUG WITHDRAWAL SYNDROME NEONATAL [None]
  - NYSTAGMUS [None]
  - STRABISMUS [None]
